FAERS Safety Report 17445723 (Version 1)
Quarter: 2020Q1

REPORT INFORMATION
  Report Type: Spontaneous
  Country: ES (occurrence: ES)
  Receive Date: 20200221
  Receipt Date: 20200221
  Transmission Date: 20200409
  Serious: Yes (Life-Threatening, Hospitalization)
  Sender: FDA-Public Use
  Company Number: NVSC2020ES046893

PATIENT
  Age: 80 Year
  Sex: Female
  Weight: 55.5 kg

DRUGS (1)
  1. EUCREAS [Suspect]
     Active Substance: METFORMIN HYDROCHLORIDE\VILDAGLIPTIN
     Indication: TYPE 2 DIABETES MELLITUS
     Dosage: 1 DF, Q12H
     Route: 048
     Dates: start: 20130902, end: 20191016

REACTIONS (3)
  - Superinfection [Recovering/Resolving]
  - Pancreatitis acute [Recovering/Resolving]
  - Pancreatic necrosis [Recovering/Resolving]

NARRATIVE: CASE EVENT DATE: 20190917
